FAERS Safety Report 6478684-6 (Version None)
Quarter: 2009Q4

REPORT INFORMATION
  Report Type: 
  Country: None (occurrence: None)
  Receive Date: 20091207
  Receipt Date: 20091125
  Transmission Date: 20100525
  Serious: Yes (Other)
  Sender: FDA-Public Use
  Company Number: IE-PFIZER INC-2009296840

PATIENT
  Age: 82 Year

DRUGS (1)
  1. PHENYTOIN SODIUM CAP [Suspect]
     Dosage: 500MG DAILY

REACTIONS (2)
  - CEREBROVASCULAR ACCIDENT [None]
  - GASTROSTOMY TUBE INSERTION [None]
